FAERS Safety Report 7945102-8 (Version None)
Quarter: 2011Q4

REPORT INFORMATION
  Report Type: 
  Country: None (occurrence: None)
  Receive Date: 20111129
  Receipt Date: 20111129
  Transmission Date: 20120403
  Serious: Yes (Other)
  Sender: FDA-Public Use
  Company Number: None

PATIENT
  Age: 73 Year
  Sex: Female
  Weight: 51.709 kg

DRUGS (2)
  1. VALTREX [Suspect]
     Indication: HERPES ZOSTER
     Dosage: 1 GRAM
     Route: 048
     Dates: start: 20111023, end: 20111030
  2. LYRICA [Concomitant]
     Indication: HERPES ZOSTER
     Dosage: 50 MG
     Route: 048
     Dates: start: 20111104, end: 20111105

REACTIONS (7)
  - NAUSEA [None]
  - DIZZINESS [None]
  - APHASIA [None]
  - ASTHENIA [None]
  - DEPRESSION [None]
  - SWOLLEN TONGUE [None]
  - ANXIETY [None]
